FAERS Safety Report 22941784 (Version 4)
Quarter: 2023Q4

REPORT INFORMATION
  Report Type: Spontaneous
  Country: US (occurrence: US)
  Receive Date: 20230914
  Receipt Date: 20231224
  Transmission Date: 20240110
  Serious: No
  Sender: FDA-Public Use
  Company Number: US-GLAXOSMITHKLINE-US2023AMR124809

PATIENT
  Sex: Female

DRUGS (1)
  1. ZEJULA [Suspect]
     Active Substance: NIRAPARIB
     Indication: Ovarian cancer
     Dosage: 200 MG, QD

REACTIONS (5)
  - Middle insomnia [Recovering/Resolving]
  - Weight decreased [Unknown]
  - Haemoglobin decreased [Unknown]
  - Renal disorder [Unknown]
  - Red blood cell count decreased [Unknown]
